FAERS Safety Report 17033229 (Version 3)
Quarter: 2020Q1

REPORT INFORMATION
  Report Type: Spontaneous
  Country: US (occurrence: US)
  Receive Date: 20191114
  Receipt Date: 20200131
  Transmission Date: 20200409
  Serious: No
  Sender: FDA-Public Use
  Company Number: US-SA-2019SA310274

PATIENT
  Age: 71 Year
  Sex: Female

DRUGS (1)
  1. DUPIXENT [Suspect]
     Active Substance: DUPILUMAB
     Dosage: 300 MG, QOW
     Route: 058
     Dates: start: 201909

REACTIONS (7)
  - Pruritus [Unknown]
  - Eczema [Unknown]
  - Migraine [Unknown]
  - Visual impairment [Unknown]
  - Urinary tract infection [Unknown]
  - Injection site pruritus [Unknown]
  - Headache [Unknown]

NARRATIVE: CASE EVENT DATE: 2019
